FAERS Safety Report 12227502 (Version 2)
Quarter: 2016Q2

REPORT INFORMATION
  Report Type: Report from Study
  Country: US (occurrence: US)
  Receive Date: 20160331
  Receipt Date: 20160420
  Transmission Date: 20160815
  Serious: No
  Sender: FDA-Public Use
  Company Number: US-AMGEN-USASL2016038728

PATIENT
  Age: 63 Year
  Sex: Male

DRUGS (1)
  1. ENBREL [Suspect]
     Active Substance: ETANERCEPT
     Indication: RHEUMATOID ARTHRITIS
     Dosage: UNK
     Route: 065
     Dates: start: 20010202

REACTIONS (7)
  - Disturbance in attention [Unknown]
  - Off label use [Unknown]
  - Depressed mood [Unknown]
  - Condition aggravated [Unknown]
  - Swelling [Unknown]
  - Daydreaming [Unknown]
  - Memory impairment [Unknown]
